FAERS Safety Report 23465847 (Version 1)
Quarter: 2024Q1

REPORT INFORMATION
  Report Type: Spontaneous
  Country: US (occurrence: US)
  Receive Date: 20240201
  Receipt Date: 20240201
  Transmission Date: 20240410
  Serious: No
  Sender: FDA-Public Use
  Company Number: US-TORRENT-00013388

PATIENT
  Age: 20 Year
  Sex: Male

DRUGS (1)
  1. DICHLORPHENAMIDE [Suspect]
     Active Substance: DICHLORPHENAMIDE
     Indication: Familial periodic paralysis
     Dosage: UNKNOWN
     Route: 065
     Dates: start: 202312

REACTIONS (3)
  - Blood potassium decreased [Unknown]
  - Paraesthesia [Unknown]
  - Feeling abnormal [Unknown]
